FAERS Safety Report 8989172 (Version 1)
Quarter: 2012Q4

REPORT INFORMATION
  Report Type: Spontaneous
  Country: FR (occurrence: None)
  Receive Date: 20121219
  Receipt Date: 20121219
  Transmission Date: 20130627
  Serious: Yes (Life-Threatening, Hospitalization)
  Sender: FDA-Public Use
  Company Number: FR12415930

PATIENT
  Age: 82 Year

DRUGS (1)
  1. METVIXIA [Suspect]
     Indication: ACTINIC KERATOSIS
     Dosage: 16.8%  (1 dosage forms)
     Route: 061
     Dates: start: 20121206, end: 20121206

REACTIONS (1)
  - Coronary artery disease [None]
